FAERS Safety Report 8989914 (Version 2)
Quarter: 2013Q1

REPORT INFORMATION
  Report Type: Spontaneous
  Country: JP (occurrence: JP)
  Receive Date: 20121228
  Receipt Date: 20130130
  Transmission Date: 20140127
  Serious: Yes (Hospitalization)
  Sender: FDA-Public Use
  Company Number: JP-GLAXOSMITHKLINE-B0854611A

PATIENT
  Age: 85 Year
  Sex: Female
  Weight: 46 kg

DRUGS (5)
  1. VALTREX [Suspect]
     Indication: HERPES ZOSTER
     Dosage: 1000MG THREE TIMES PER DAY
     Route: 048
     Dates: start: 20121211, end: 20121213
  2. URSO [Concomitant]
     Indication: CHRONIC HEPATITIS C
     Dosage: 100MG THREE TIMES PER DAY
     Route: 048
  3. COVERSYL [Concomitant]
     Indication: HYPERTENSION
     Dosage: 4MG TWICE PER DAY
     Route: 048
  4. NORVASC [Concomitant]
     Indication: HYPERTENSION
     Dosage: 5MG PER DAY
     Route: 048
  5. MARZULENE [Concomitant]
     Indication: GASTRITIS
     Dosage: 1IUAX THREE TIMES PER DAY
     Route: 048

REACTIONS (6)
  - Renal tubular disorder [Unknown]
  - Renal failure [Unknown]
  - Renal disorder [Recovering/Resolving]
  - Malaise [Unknown]
  - Blood urea increased [Unknown]
  - Blood creatinine increased [Unknown]
